FAERS Safety Report 8811267 (Version 1)
Quarter: 2012Q4

REPORT INFORMATION
  Report Type: 
  Country: US (occurrence: None)
  Receive Date: 20120924
  Receipt Date: 20120924
  Transmission Date: 20130627
  Serious: Yes (Hospitalization)
  Sender: FDA-Public Use
  Company Number: None

PATIENT
  Sex: Male
  Weight: 87 kg

DRUGS (2)
  1. CARBOPLATIN [Suspect]
     Dates: start: 20120911
  2. DOCETAXEL (TAXOTERE) [Suspect]
     Dates: start: 20120911

REACTIONS (4)
  - Iron deficiency anaemia [None]
  - Body temperature increased [None]
  - Neutrophil count decreased [None]
  - White blood cell count decreased [None]
